FAERS Safety Report 10240809 (Version 1)
Quarter: 2014Q2

REPORT INFORMATION
  Report Type: Spontaneous
  Country: US (occurrence: US)
  Receive Date: 20140617
  Receipt Date: 20140617
  Transmission Date: 20141212
  Serious: No
  Sender: FDA-Public Use
  Company Number: US-009507513-1406USA007530

PATIENT
  Age: 3 Year
  Sex: Female

DRUGS (1)
  1. SINGULAIR [Suspect]
     Dosage: 4 MG, UNK
     Route: 048

REACTIONS (4)
  - Enuresis [Unknown]
  - Mood swings [Unknown]
  - Pneumonia [Unknown]
  - Pyrexia [Unknown]
